FAERS Safety Report 7878528-1 (Version None)
Quarter: 2011Q4

REPORT INFORMATION
  Report Type: 
  Country: None (occurrence: None)
  Receive Date: 20111101
  Receipt Date: 20111021
  Transmission Date: 20120403
  Serious: Yes (Hospitalization, Other)
  Sender: FDA-Public Use
  Company Number: FR-ASTELLAS-2011EU004367

PATIENT
  Sex: Male
  Weight: 69 kg

DRUGS (4)
  1. CORDARONE [Suspect]
     Dosage: 200 MG, UNKNOWN/D
     Route: 048
     Dates: start: 20110628, end: 20110628
  2. CASPOFUNGIN ACETATE [Suspect]
     Dosage: 70 MG, UNKNOWN/D
     Route: 065
     Dates: start: 20110625, end: 20110625
  3. CORDARONE [Suspect]
     Indication: ATRIAL FIBRILLATION
     Dosage: 300 MG, UNKNOWN/D
     Route: 042
     Dates: start: 20110628, end: 20110628
  4. MICAFUNGIN INJECTION [Suspect]
     Indication: ANTIFUNGAL PROPHYLAXIS
     Dosage: 100 MG, UNKNOWN/D
     Route: 042
     Dates: start: 20110628, end: 20110628

REACTIONS (3)
  - HEPATOCELLULAR INJURY [None]
  - COAGULATION FACTOR V LEVEL DECREASED [None]
  - HEPATIC FAILURE [None]
